FAERS Safety Report 7769174-9 (Version None)
Quarter: 2011Q3

REPORT INFORMATION
  Report Type: 
  Country: None (occurrence: None)
  Receive Date: 20110922
  Receipt Date: 20110912
  Transmission Date: 20111222
  Serious: Yes (Hospitalization)
  Sender: FDA-Public Use
  Company Number: NL-CELGENEUS-114-21880-11090052

PATIENT
  Sex: Female
  Weight: 81 kg

DRUGS (26)
  1. FLUCONAZOLE [Concomitant]
     Route: 048
     Dates: start: 20110822, end: 20110822
  2. POLYETHYLENE GLYCOL [Concomitant]
     Route: 048
     Dates: start: 20110818, end: 20110822
  3. POLYETHYLENE GLYCOL [Concomitant]
     Route: 065
     Dates: start: 20110906, end: 20110909
  4. SODIUM HYPOCHLORITE [Concomitant]
     Route: 003
     Dates: start: 20110822, end: 20110826
  5. REVLIMID [Suspect]
     Indication: MULTIPLE MYELOMA
     Dosage: 25 MILLIGRAM
     Route: 048
     Dates: start: 20110527
  6. HYDROCHLORTHIAZID [Concomitant]
     Route: 048
     Dates: start: 20110810, end: 20110812
  7. FUROSEMIDE [Concomitant]
     Route: 041
     Dates: start: 20110811, end: 20110817
  8. FUROSEMIDE [Concomitant]
     Dosage: 40 MILLIGRAM
     Route: 065
     Dates: start: 20110906
  9. NADROPARIN [Concomitant]
     Route: 058
     Dates: start: 20110804
  10. DEXAMETHASONE [Suspect]
     Indication: MULTIPLE MYELOMA
     Route: 048
     Dates: start: 20110527
  11. LISINOPRIL [Concomitant]
     Dosage: 5 MILLIGRAM
     Route: 065
     Dates: start: 20110611
  12. LISINOPRIL [Concomitant]
     Route: 048
     Dates: start: 20110819, end: 20110819
  13. ACETAMINOPHEN [Concomitant]
     Route: 065
     Dates: start: 20110906
  14. REVLIMID [Suspect]
     Dosage: 10 MILLIGRAM
     Route: 048
     Dates: start: 20110723, end: 20110803
  15. DEXAMETHASONE [Suspect]
     Route: 048
     Dates: start: 20110723, end: 20110803
  16. POTASSIUM CHLORIDE [Concomitant]
     Dosage: 1800 MILLIGRAM
     Route: 048
     Dates: start: 20110806, end: 20110819
  17. DARBEPOETIN ALFA [Concomitant]
     Route: 058
     Dates: start: 20110812, end: 20110812
  18. DARBEPOETIN ALFA [Concomitant]
     Route: 065
     Dates: start: 20110906
  19. FUROSEMIDE [Concomitant]
     Route: 048
     Dates: start: 20110817, end: 20110817
  20. NADROPARIN [Concomitant]
     Dosage: 7600 IU
     Route: 050
     Dates: start: 20110524
  21. NADROPARIN [Concomitant]
     Route: 058
     Dates: start: 20110804, end: 20110804
  22. DARBEPOETIN ALFA [Concomitant]
     Route: 058
     Dates: start: 20110808, end: 20110808
  23. NIFEDIPINE [Concomitant]
     Route: 048
     Dates: start: 20110810, end: 20110812
  24. POTASSIUM CHLORIDE [Concomitant]
     Dosage: 30 MILLIMOLE
     Route: 041
     Dates: start: 20110825, end: 20110902
  25. ACETAMINOPHEN [Concomitant]
     Route: 054
     Dates: start: 20110816
  26. CLISMA FOSFATO SODICO [Concomitant]
     Route: 054
     Dates: start: 20110818, end: 20110901

REACTIONS (1)
  - COLON CANCER [None]
